FAERS Safety Report 7536132-9 (Version None)
Quarter: 2011Q2

REPORT INFORMATION
  Report Type: 
  Country: None (occurrence: None)
  Receive Date: 20110602
  Receipt Date: 20110524
  Transmission Date: 20111010
  Serious: Yes (Death, Hospitalization)
  Sender: FDA-Public Use
  Company Number: 2010JP006519

PATIENT
  Age: 71 Year
  Sex: Female

DRUGS (11)
  1. FERROMIA (FERROUS SODIUM CITRATE) FORMULATION UNKNOWN [Concomitant]
  2. PREDNISOLONE [Concomitant]
  3. ONEALFA (ALFACALCIDOL) FORMULATION UNKNOWN [Concomitant]
  4. OMEPRAL (OMEPRAZOLE) FORMULATION UNKNOWN [Concomitant]
  5. BASEN (VOGLIBOSE) FORMULATION UNKNOWN [Concomitant]
  6. PROGRAF [Suspect]
     Indication: MYASTHENIA GRAVIS
     Dosage: 3 MG, UID/QD, OPHTHALMIC
     Route: 047
     Dates: start: 20050106, end: 20100903
  7. BONALON (ALENDRONATE SODIUM) FORMULATION UNKNOWN [Concomitant]
  8. AMARYL (GLIMEPIRIDE) FORMULATION UNKNOWN [Concomitant]
  9. MESTINON (PYRIDOSTIGMINE BROMIDE) FORMULATION UNKNOWN [Concomitant]
  10. BENET (RISEDRONATE SODIUM) FORMULATION UNKNOWN [Concomitant]
  11. GASTER (FAMOTIDINE) ORODISPERSIBLE CR TABLET [Concomitant]

REACTIONS (7)
  - PLATELET COUNT DECREASED [None]
  - LYMPHOMA [None]
  - BIOPSY KIDNEY ABNORMAL [None]
  - INTESTINAL OBSTRUCTION [None]
  - FAECES DISCOLOURED [None]
  - ILEUS [None]
  - ANAEMIA [None]
